FAERS Safety Report 7337005-7 (Version None)
Quarter: 2011Q1

REPORT INFORMATION
  Report Type: 
  Country: None (occurrence: None)
  Receive Date: 20110308
  Receipt Date: 20110226
  Transmission Date: 20110831
  Serious: Yes (Other)
  Sender: FDA-Public Use
  Company Number: US-RB-022101-11

PATIENT
  Age: 7 Year
  Sex: Female

DRUGS (1)
  1. DELSYM 12HR COUGH RELIEF [Suspect]
     Dosage: GIVEN 13 OR 14ML IN ONE DOSE
     Route: 048
     Dates: start: 20110226

REACTIONS (2)
  - HALLUCINATION [None]
  - ACCIDENTAL OVERDOSE [None]
